FAERS Safety Report 6844256-4 (Version None)
Quarter: 2010Q3

REPORT INFORMATION
  Report Type: 
  Country: None (occurrence: None)
  Receive Date: 20100715
  Receipt Date: 20100614
  Transmission Date: 20110219
  Serious: Yes (Hospitalization)
  Sender: FDA-Public Use
  Company Number: IL-ROCHE-589390

PATIENT
  Sex: Female
  Weight: 67 kg

DRUGS (5)
  1. BEVACIZUMAB [Suspect]
     Dosage: LAST DOSE PRIOR TO SAE: 21 SEP 08. THERAPY TEMPORARILY INTERRUPTED;STRENGTH: 25 MG/ML (PER PROTOCOL)
     Route: 042
     Dates: start: 20080518
  2. BEVACIZUMAB [Suspect]
     Dosage: THERAPY WAS RESTARTED.
     Route: 042
     Dates: start: 20081026
  3. DOCETAXEL [Suspect]
     Dosage: THERAPY WAS TEMPORARILY INTERRUPTED; LAST DOSE PRIOR TO SAE 21 SEP 2008
     Route: 042
     Dates: start: 20080811
  4. DOCETAXEL [Suspect]
     Dosage: THERAPY WAS RESTARTED.
     Route: 042
     Dates: start: 20081026
  5. PRILOSEC [Concomitant]
     Dates: start: 20080930

REACTIONS (3)
  - FEBRILE NEUTROPENIA [None]
  - PLEURAL EFFUSION [None]
  - PNEUMONIA [None]
